FAERS Safety Report 7714023-8 (Version None)
Quarter: 2011Q3

REPORT INFORMATION
  Report Type: 
  Country: None (occurrence: None)
  Receive Date: 20110826
  Receipt Date: 20110811
  Transmission Date: 20111222
  Serious: Yes (Hospitalization, Other)
  Sender: FDA-Public Use
  Company Number: IN-WATSON-2011-13390

PATIENT
  Age: 21 Year
  Sex: Male

DRUGS (1)
  1. VALPROATE SODIUM [Suspect]
     Indication: BIPOLAR DISORDER

REACTIONS (10)
  - HEADACHE [None]
  - RESPIRATORY ACIDOSIS [None]
  - AGITATION [None]
  - COMA [None]
  - HYPOTENSION [None]
  - OVERDOSE [None]
  - SOMNOLENCE [None]
  - PUPILLARY DISORDER [None]
  - METABOLIC ACIDOSIS [None]
  - MIOSIS [None]
